FAERS Safety Report 24152159 (Version 1)
Quarter: 2024Q3

REPORT INFORMATION
  Report Type: Spontaneous
  Country: BR (occurrence: BR)
  Receive Date: 20240730
  Receipt Date: 20240730
  Transmission Date: 20241017
  Serious: Yes (Other)
  Sender: VERTEX
  Company Number: BR-VERTEX PHARMACEUTICALS-2024-012350

PATIENT
  Age: 31 Year
  Sex: Female
  Weight: 52 kg

DRUGS (4)
  1. TRIKAFTA [Suspect]
     Active Substance: ELEXACAFTOR\IVACAFTOR\TEZACAFTOR
     Indication: Cystic fibrosis
     Dosage: 200MG ELEXA/100MG TEZA/150MG IVA + 150MG IVA
     Route: 048
     Dates: start: 20240425
  2. DORNASE ALFA [Concomitant]
     Active Substance: DORNASE ALFA
     Indication: Bronchiectasis
     Dosage: 2.5MG, SID EVERYDAY
     Dates: start: 1997
  3. PANCREATIN [Concomitant]
     Active Substance: PANCRELIPASE
     Indication: Pancreatic failure
     Dosage: 75,000 QID EVERYDAY
     Dates: start: 1996
  4. TOBRAMYCIN [Concomitant]
     Active Substance: TOBRAMYCIN\TOBRAMYCIN SULFATE
     Indication: Pseudomonas infection
     Dosage: 300MG, BID ALTERNATIVE MONTHS
     Dates: start: 2014, end: 20240524

REACTIONS (1)
  - Haemoptysis [Recovered/Resolved]

NARRATIVE: CASE EVENT DATE: 20240616
